FAERS Safety Report 9032550 (Version 1)
Quarter: 2013Q1

REPORT INFORMATION
  Report Type: Spontaneous
  Country: JP (occurrence: None)
  Receive Date: 20130108
  Receipt Date: 20130108
  Transmission Date: 20140127
  Serious: Yes (Hospitalization)
  Sender: FDA-Public Use
  Company Number: TCI2012A07340

PATIENT
  Age: 69 Year
  Sex: Male

DRUGS (5)
  1. ACTOS (PIOGLITAZONE HYDROCHLORIDE) [Suspect]
     Indication: DIABETES MELLITUS
     Route: 048
  2. AMARYL (GLIMEPIRIDE) [Concomitant]
  3. SEIBULE (MIGLITOL) [Concomitant]
  4. MICARDIS (TELMISARTAN) [Concomitant]
  5. MICAMLO AP (AMLODIPINE BESILATE, TELMISARTAN) [Concomitant]

REACTIONS (3)
  - Bladder neoplasm [None]
  - Pneumonia [None]
  - Visual impairment [None]
